FAERS Safety Report 9816904 (Version 1)
Quarter: 2014Q1

REPORT INFORMATION
  Report Type: Spontaneous
  Country: US (occurrence: US)
  Receive Date: 20140114
  Receipt Date: 20140114
  Transmission Date: 20141002
  Serious: No
  Sender: FDA-Public Use
  Company Number: US-ENDO PHARMACEUTICALS INC.-ENDC20130025

PATIENT
  Age: 57 Year
  Sex: Male
  Weight: 111.23 kg

DRUGS (1)
  1. ENDOCET 10MG/325MG [Suspect]
     Indication: SPINAL PAIN
     Dosage: 50/1625 MG
     Route: 048
     Dates: start: 201301

REACTIONS (3)
  - Flatulence [Not Recovered/Not Resolved]
  - Abdominal discomfort [Not Recovered/Not Resolved]
  - Drug ineffective [Not Recovered/Not Resolved]
